FAERS Safety Report 7881273-X (Version None)
Quarter: 2011Q4

REPORT INFORMATION
  Report Type: 
  Country: None (occurrence: None)
  Receive Date: 20111101
  Receipt Date: 20110609
  Transmission Date: 20120403
  Serious: No
  Sender: FDA-Public Use
  Company Number: US-AMGEN-USASP2011029730

PATIENT
  Sex: Male

DRUGS (2)
  1. ARAVA [Concomitant]
     Dates: start: 20110101
  2. ENBREL [Suspect]
     Indication: RHEUMATOID ARTHRITIS
     Dosage: 50 MG, QWK
     Dates: start: 20110501

REACTIONS (5)
  - HAEMORRHAGIC DIATHESIS [None]
  - HOT FLUSH [None]
  - LACERATION [None]
  - BLEEDING TIME PROLONGED [None]
  - INCREASED TENDENCY TO BRUISE [None]
